FAERS Safety Report 14162354 (Version 2)
Quarter: 2018Q1

REPORT INFORMATION
  Report Type: Spontaneous
  Country: JP (occurrence: JP)
  Receive Date: 20171106
  Receipt Date: 20180103
  Transmission Date: 20180508
  Serious: Yes (Hospitalization, Other)
  Sender: FDA-Public Use
  Company Number: JP-JNJFOC-20170728605

PATIENT
  Age: 71 Year
  Sex: Male
  Weight: 46 kg

DRUGS (21)
  1. BAYASPIRIN [Concomitant]
     Active Substance: ASPIRIN
     Route: 065
     Dates: end: 20170531
  2. NERIPROCT [Concomitant]
     Active Substance: DIFLUCORTOLONE VALERATE\LIDOCAINE
     Route: 054
  3. BAKTAR [Suspect]
     Active Substance: SULFAMETHOXAZOLE\TRIMETHOPRIM
     Indication: BEHCET^S SYNDROME
     Route: 048
     Dates: start: 20170626, end: 20170714
  4. GANCICLOVIR. [Suspect]
     Active Substance: GANCICLOVIR
     Indication: CYTOMEGALOVIRUS INFECTION
     Route: 041
     Dates: start: 20170707, end: 20170713
  5. PREDNISOLONE. [Concomitant]
     Active Substance: PREDNISOLONE
     Indication: BEHCET^S SYNDROME
     Route: 048
     Dates: start: 20170713, end: 20170802
  6. PREDNISOLONE. [Concomitant]
     Active Substance: PREDNISOLONE
     Indication: BEHCET^S SYNDROME
     Route: 048
     Dates: start: 20170803
  7. POSTERISAN [Concomitant]
     Active Substance: LIDOCAINE
     Route: 061
  8. TRAMCET [Concomitant]
     Active Substance: ACETAMINOPHEN\TRAMADOL
     Route: 048
     Dates: end: 20170717
  9. HUMIRA [Concomitant]
     Active Substance: ADALIMUMAB
     Route: 051
     Dates: start: 20170801
  10. HUMIRA [Concomitant]
     Active Substance: ADALIMUMAB
     Route: 051
     Dates: start: 20170815
  11. REMICADE [Suspect]
     Active Substance: INFLIXIMAB
     Indication: BEHCET^S SYNDROME
     Dosage: 2ND DOSE
     Route: 042
     Dates: start: 20170704, end: 20170801
  12. PENTASA [Suspect]
     Active Substance: MESALAMINE
     Indication: BEHCET^S SYNDROME
     Route: 048
     Dates: start: 20170606, end: 20170717
  13. VANCOMYCIN [Concomitant]
     Active Substance: VANCOMYCIN
     Indication: PSEUDOMEMBRANOUS COLITIS
     Route: 048
     Dates: start: 20170710, end: 20170723
  14. REMICADE [Suspect]
     Active Substance: INFLIXIMAB
     Indication: BEHCET^S SYNDROME
     Dosage: 1ST DOSE
     Route: 042
     Dates: start: 20170620, end: 20170620
  15. IMURAN [Suspect]
     Active Substance: AZATHIOPRINE
     Indication: BEHCET^S SYNDROME
     Route: 048
     Dates: start: 20170620, end: 20170714
  16. PREDNISOLONE. [Concomitant]
     Active Substance: PREDNISOLONE
     Indication: BEHCET^S SYNDROME
     Route: 048
     Dates: start: 20170622, end: 20170628
  17. FLAGYL [Concomitant]
     Active Substance: METRONIDAZOLE\METRONIDAZOLE HYDROCHLORIDE
     Indication: INFLAMMATION
     Route: 048
     Dates: start: 20170616, end: 20170626
  18. PREDNISOLONE. [Concomitant]
     Active Substance: PREDNISOLONE
     Indication: BEHCET^S SYNDROME
     Route: 048
     Dates: start: 20170629, end: 20170705
  19. PREDNISOLONE. [Concomitant]
     Active Substance: PREDNISOLONE
     Indication: BEHCET^S SYNDROME
     Route: 048
     Dates: start: 20170609
  20. PREDNISOLONE. [Concomitant]
     Active Substance: PREDNISOLONE
     Indication: BEHCET^S SYNDROME
     Route: 048
     Dates: start: 20170706, end: 20170712
  21. PREDONINE [Concomitant]
     Active Substance: PREDNISOLONE
     Indication: BEHCET^S SYNDROME
     Route: 042
     Dates: start: 20170609, end: 20170621

REACTIONS (7)
  - Pancytopenia [Unknown]
  - Hypotension [Unknown]
  - Proctalgia [Unknown]
  - Agranulocytosis [Recovered/Resolved]
  - Cytomegalovirus infection [Unknown]
  - Rash [Unknown]
  - Pseudomembranous colitis [Unknown]

NARRATIVE: CASE EVENT DATE: 2017
